FAERS Safety Report 18004997 (Version 1)
Quarter: 2020Q3

REPORT INFORMATION
  Report Type: Report from Study
  Country: US (occurrence: US)
  Receive Date: 20200710
  Receipt Date: 20200710
  Transmission Date: 20201103
  Serious: Yes (Other)
  Sender: FDA-Public Use
  Company Number: US-ROCHE-2262071

PATIENT
  Sex: Male

DRUGS (36)
  1. RAPAMUNE [Concomitant]
     Active Substance: SIROLIMUS
     Dosage: DAILY
     Route: 048
  2. DEXTROSE. [Concomitant]
     Active Substance: DEXTROSE
     Route: 042
  3. RITUXAN [Suspect]
     Active Substance: RITUXIMAB
     Indication: LUNG TRANSPLANT
     Route: 065
  4. ZITHROMAX [Concomitant]
     Active Substance: AZITHROMYCIN DIHYDRATE
     Dosage: DAILY
     Route: 048
  5. GUAIFENESIN. [Concomitant]
     Active Substance: GUAIFENESIN
     Route: 048
  6. DELTASONE [Concomitant]
     Active Substance: PREDNISONE
     Dosage: DAILY
     Route: 048
  7. PRAVACHOL [Concomitant]
     Active Substance: PRAVASTATIN SODIUM
     Dosage: NIGHTLY
     Route: 048
  8. ATROVENT [Concomitant]
     Active Substance: IPRATROPIUM BROMIDE
     Route: 065
  9. VERSED [Concomitant]
     Active Substance: MIDAZOLAM HYDROCHLORIDE
     Route: 048
  10. CELLCEPT [Suspect]
     Active Substance: MYCOPHENOLATE MOFETIL\MYCOPHENOLATE MOFETIL HYDROCHLORIDE
     Indication: LUNG TRANSPLANT
     Dosage: ON HOLD
     Route: 065
  11. PROGRAF [Concomitant]
     Active Substance: TACROLIMUS
     Dosage: DAILY
     Route: 048
  12. NEURONTIN [Concomitant]
     Active Substance: GABAPENTIN
     Route: 048
  13. OYSTER SHELL CALCIUM [Concomitant]
     Active Substance: CALCIUM
     Route: 048
  14. GLUCAGON. [Concomitant]
     Active Substance: GLUCAGON
     Route: 030
  15. MEPRON [Concomitant]
     Active Substance: ATOVAQUONE
     Route: 048
  16. TYLENOL [Concomitant]
     Active Substance: ACETAMINOPHEN
     Route: 048
  17. BENADRYL [Concomitant]
     Active Substance: DIPHENHYDRAMINE HYDROCHLORIDE
     Route: 065
  18. XYLOCAINE [Concomitant]
     Active Substance: LIDOCAINE HYDROCHLORIDE
     Route: 065
  19. MAG?OX [Concomitant]
     Active Substance: MAGNESIUM OXIDE
     Route: 048
  20. PROGRAF [Concomitant]
     Active Substance: TACROLIMUS
     Route: 065
  21. ULTRAM [Concomitant]
     Active Substance: TRAMADOL HYDROCHLORIDE
     Route: 048
  22. AMBISOME [Concomitant]
     Active Substance: AMPHOTERICIN B
     Route: 065
  23. PHENERGAN [Concomitant]
     Active Substance: PROMETHAZINE HYDROCHLORIDE
     Route: 048
  24. CRESEMBA [Concomitant]
     Active Substance: ISAVUCONAZONIUM SULFATE
     Dosage: DAILY
     Route: 048
  25. LOVENOX [Concomitant]
     Active Substance: ENOXAPARIN SODIUM
     Dosage: DAILY
     Route: 058
  26. HUMULIN N [Concomitant]
     Active Substance: INSULIN HUMAN
     Route: 058
  27. VALCYTE [Suspect]
     Active Substance: VALGANCICLOVIR HYDROCHLORIDE
     Indication: LUNG TRANSPLANT
     Route: 048
  28. NEBUPENT [Concomitant]
     Active Substance: PENTAMIDINE ISETHIONATE
     Route: 065
  29. PROSCAR [Concomitant]
     Active Substance: FINASTERIDE
     Route: 048
  30. FLOMAX [Concomitant]
     Active Substance: TAMSULOSIN HYDROCHLORIDE
     Dosage: DAILY
     Route: 048
  31. VITAMIN D2 [Concomitant]
     Active Substance: ERGOCALCIFEROL
     Route: 048
  32. FLONASE [Concomitant]
     Active Substance: FLUTICASONE PROPIONATE
     Route: 045
  33. ECOTRIN [Concomitant]
     Active Substance: ASPIRIN
     Dosage: EVRY MORNING
     Route: 048
  34. DEXTROSE. [Concomitant]
     Active Substance: DEXTROSE
     Dosage: 40 ML/HR
     Route: 042
  35. TESSALON [Concomitant]
     Active Substance: BENZONATATE
     Route: 048
  36. ACETYLCYSTEINE. [Concomitant]
     Active Substance: ACETYLCYSTEINE
     Route: 065

REACTIONS (11)
  - Rash [Unknown]
  - Rash erythematous [Unknown]
  - Intentional product use issue [Unknown]
  - Muscle strain [Unknown]
  - Rales [Unknown]
  - Leukopenia [Unknown]
  - Cough [Unknown]
  - Off label use [Unknown]
  - Skin cancer [Unknown]
  - Pulmonary function test decreased [Unknown]
  - Mycobacterium abscessus infection [Unknown]
